FAERS Safety Report 16109993 (Version 2)
Quarter: 2019Q1

REPORT INFORMATION
  Report Type: Report from Study
  Country: US (occurrence: US)
  Receive Date: 20190325
  Receipt Date: 20190327
  Transmission Date: 20190418
  Serious: No
  Sender: FDA-Public Use
  Company Number: PHEH2019US012942

PATIENT
  Age: 52 Year
  Sex: Female
  Weight: 71.66 kg

DRUGS (1)
  1. GLATOPA [Suspect]
     Active Substance: GLATIRAMER ACETATE
     Indication: MULTIPLE SCLEROSIS
     Dosage: 40 MG, TIW (ROTATING SITES)
     Route: 058
     Dates: start: 20190315

REACTIONS (1)
  - Injection site swelling [Recovering/Resolving]

NARRATIVE: CASE EVENT DATE: 20190318
